FAERS Safety Report 10018091 (Version 1)
Quarter: 2014Q1

REPORT INFORMATION
  Report Type: Spontaneous
  Country: US (occurrence: US)
  Receive Date: 20140318
  Receipt Date: 20140318
  Transmission Date: 20141002
  Serious: No
  Sender: FDA-Public Use
  Company Number: US-BRISTOL-MYERS SQUIBB COMPANY-18941641

PATIENT
  Age: 46 Year
  Sex: Female
  Weight: 65.76 kg

DRUGS (11)
  1. ERBITUX SOLN FOR INF [Suspect]
  2. IRINOTECAN [Concomitant]
  3. ATROPINE [Concomitant]
  4. NEULASTA [Concomitant]
     Indication: WHITE BLOOD CELL COUNT
  5. CLARITIN [Concomitant]
     Indication: PAIN
     Dosage: 24 HR THE DAY BEFORE DAY OF, AND DAY AFTER NEULASTA
  6. COMPAZINE [Concomitant]
  7. ATIVAN [Concomitant]
  8. ZOFRAN [Concomitant]
  9. IBUPROFEN [Concomitant]
  10. TRIAMCINOLONE ACETONIDE CREAM [Concomitant]
     Dosage: STR:0.1%.
  11. PEPCID [Concomitant]

REACTIONS (3)
  - Acne [Not Recovered/Not Resolved]
  - Skin fissures [Recovering/Resolving]
  - Eczema [Unknown]
